FAERS Safety Report 8243782-3 (Version None)
Quarter: 2012Q1

REPORT INFORMATION
  Report Type: 
  Country: None (occurrence: None)
  Receive Date: 20120329
  Receipt Date: 20120110
  Transmission Date: 20120608
  Serious: No
  Sender: FDA-Public Use
  Company Number: US-MYLANLABS-2011S1022062

PATIENT
  Age: 28 Year
  Sex: Male
  Weight: 106.6 kg

DRUGS (6)
  1. RISPERIDONE [Concomitant]
  2. KLONOPIN [Concomitant]
  3. ZYRTEC [Concomitant]
  4. EMSAM [Suspect]
     Indication: MAJOR DEPRESSION
     Dosage: APPLIED QOD
     Route: 062
     Dates: start: 20111116, end: 20120101
  5. LAMICTAL [Concomitant]
  6. EMSAM [Suspect]
     Route: 062
     Dates: start: 20111116, end: 20120101

REACTIONS (4)
  - URINARY RETENTION [None]
  - PROSTATITIS [None]
  - PROSTATOMEGALY [None]
  - POLLAKIURIA [None]
